FAERS Safety Report 20726501 (Version 1)
Quarter: 2022Q2

REPORT INFORMATION
  Report Type: Report from Study
  Country: TR (occurrence: TR)
  Receive Date: 20220419
  Receipt Date: 20220419
  Transmission Date: 20220721
  Serious: Yes (Death)
  Sender: FDA-Public Use
  Company Number: TR-MYLANLABS-2022M1028971

PATIENT
  Age: 70 Year

DRUGS (5)
  1. FLUOROURACIL [Suspect]
     Active Substance: FLUOROURACIL
     Indication: Metastatic gastric cancer
     Dosage: 400 MILLIGRAM/SQ. METER (FIRST LINE TREATMENT..
     Route: 042
  2. FLUOROURACIL [Suspect]
     Active Substance: FLUOROURACIL
     Dosage: 2400 MILLIGRAM/KILOGRAM (46 H INFUSION)
     Route: 042
  3. DOCETAXEL [Suspect]
     Active Substance: DOCETAXEL
     Indication: Metastatic gastric cancer
     Dosage: 60 MILLIGRAM/SQ. METER (FIRST LINE TREATMENT..
     Route: 042
  4. CISPLATIN [Suspect]
     Active Substance: CISPLATIN
     Indication: Metastatic gastric cancer
     Dosage: 50 MILLIGRAM/SQ. METER (FIRST LINE TREATMENT; ON DAY..
     Route: 042
  5. LEUCOVORIN [Concomitant]
     Active Substance: LEUCOVORIN
     Indication: Metastatic gastric cancer
     Dosage: 400 MILLIGRAM/SQ. METER, BIWEEKLY (FIRST LINE TREATMENT..
     Route: 042

REACTIONS (2)
  - Febrile neutropenia [Fatal]
  - Mucosal inflammation [Fatal]
